FAERS Safety Report 12592178 (Version 1)
Quarter: 2016Q3

REPORT INFORMATION
  Report Type: Spontaneous
  Country: US (occurrence: US)
  Receive Date: 20160726
  Receipt Date: 20160726
  Transmission Date: 20161109
  Serious: No
  Sender: FDA-Public Use
  Company Number: US-TEVA-591136USA

PATIENT
  Sex: Female
  Weight: 57.66 kg

DRUGS (2)
  1. METOCLOPRAMIDE. [Suspect]
     Active Substance: METOCLOPRAMIDE
     Indication: GASTROOESOPHAGEAL REFLUX DISEASE
     Dosage: TAKE ONE TABLET B Y MOUTH WITH EVENING MEAL
     Route: 048
     Dates: start: 20150701, end: 20150811
  2. METOCLOPRAMIDE. [Suspect]
     Active Substance: METOCLOPRAMIDE
     Indication: FLATULENCE

REACTIONS (3)
  - Dyskinesia [Unknown]
  - Oral pain [Unknown]
  - Inappropriate schedule of drug administration [Unknown]
